FAERS Safety Report 9066995 (Version 1)
Quarter: 2013Q1

REPORT INFORMATION
  Report Type: Report from Study
  Country: US (occurrence: US)
  Receive Date: 20130201
  Receipt Date: 20130201
  Transmission Date: 20140127
  Serious: No
  Sender: FDA-Public Use
  Company Number: US-ABBOTT-12P-163-1028606-00

PATIENT
  Age: 34 Year
  Sex: Male

DRUGS (4)
  1. HUMIRA [Suspect]
     Indication: PSORIASIS
     Route: 058
     Dates: start: 20121002
  2. HUMIRA [Suspect]
  3. VALACYCLOVIR HYDROCHLORIDE [Concomitant]
     Indication: HERPES SIMPLEX
  4. VALACYCLOVIR HYDROCHLORIDE [Concomitant]
     Dates: start: 20130111

REACTIONS (2)
  - Herpes simplex [Recovered/Resolved]
  - Herpes simplex [Recovered/Resolved]
